FAERS Safety Report 8608844-7 (Version None)
Quarter: 2012Q3

REPORT INFORMATION
  Report Type: 
  Country: None (occurrence: None)
  Receive Date: 20120821
  Receipt Date: 20120806
  Transmission Date: 20120928
  Serious: Yes (Death, Other)
  Sender: FDA-Public Use
  Company Number: ES-ROCHE-1075575

PATIENT

DRUGS (2)
  1. XELODA [Suspect]
     Indication: RECTAL CANCER
     Dosage: MONDAY TO FRIDAY
  2. OXALIPLATIN [Suspect]
     Indication: RECTAL CANCER
     Dosage: DAYS 1, 8, AND 15

REACTIONS (10)
  - CARDIOTOXICITY [None]
  - PROCTITIS [None]
  - FAECAL INCONTINENCE [None]
  - THROMBOCYTOPENIA [None]
  - SEPSIS [None]
  - LEUKOPENIA [None]
  - DIARRHOEA [None]
  - NAUSEA [None]
  - PULMONARY EMBOLISM [None]
  - VOMITING [None]
